FAERS Safety Report 12659331 (Version 1)
Quarter: 2016Q3

REPORT INFORMATION
  Report Type: Spontaneous
  Country: US (occurrence: US)
  Receive Date: 20160817
  Receipt Date: 20160817
  Transmission Date: 20161109
  Serious: No
  Sender: FDA-Public Use
  Company Number: US-GLAXOSMITHKLINE-US2016111484

PATIENT
  Sex: Female

DRUGS (4)
  1. FLOVENT DISKUS [Concomitant]
     Active Substance: FLUTICASONE PROPIONATE
  2. SEREVENT DISKUS [Suspect]
     Active Substance: SALMETEROL XINAFOATE
  3. FLOVENT DISKUS [Suspect]
     Active Substance: FLUTICASONE PROPIONATE
  4. SEREVENT DISKUS [Concomitant]
     Active Substance: SALMETEROL XINAFOATE

REACTIONS (4)
  - Therapeutic response changed [Unknown]
  - Product substitution issue [Unknown]
  - Drug ineffective [Unknown]
  - Overdose [Unknown]
